FAERS Safety Report 12558435 (Version 2)
Quarter: 2016Q3

REPORT INFORMATION
  Report Type: Spontaneous
  Country: US (occurrence: US)
  Receive Date: 20160714
  Receipt Date: 20160816
  Transmission Date: 20161109
  Serious: Yes (Other)
  Sender: FDA-Public Use
  Company Number: US-BAUSCH-BL-2016-015902

PATIENT
  Age: 86 Year
  Sex: Female
  Weight: 63.56 kg

DRUGS (3)
  1. MULTIVITAMIN [Concomitant]
     Active Substance: VITAMINS
     Indication: SUPPLEMENTATION THERAPY
     Route: 048
  2. OCUVITE [Suspect]
     Active Substance: VITAMINS
     Indication: SUPPLEMENTATION THERAPY
     Route: 048
  3. AMBI FADE NORMAL SKIN [Suspect]
     Active Substance: HYDROQUINONE\OCTINOXATE
     Indication: PIGMENTATION DISORDER
     Route: 061
     Dates: start: 2016, end: 2016

REACTIONS (2)
  - Cataract operation [Unknown]
  - Application site mass [Not Recovered/Not Resolved]

NARRATIVE: CASE EVENT DATE: 2016
